FAERS Safety Report 23934043 (Version 1)
Quarter: 2024Q2

REPORT INFORMATION
  Report Type: Spontaneous
  Country: CN (occurrence: CN)
  Receive Date: 20240603
  Receipt Date: 20240603
  Transmission Date: 20240716
  Serious: Yes (Other)
  Sender: FDA-Public Use
  Company Number: CN-NAPPMUNDI-GBR-2024-0116933

PATIENT
  Age: 71 Year
  Sex: Male

DRUGS (2)
  1. MS CONTIN [Suspect]
     Active Substance: MORPHINE SULFATE
     Indication: Analgesic therapy
     Dosage: 30 MILLIGRAM, BID
     Route: 048
     Dates: start: 20240522, end: 20240526
  2. MORPHINE HYDROCHLORIDE [Concomitant]
     Active Substance: MORPHINE HYDROCHLORIDE
     Indication: Analgesic therapy
     Dosage: 10 MILLIGRAM, DAILY
     Route: 058
     Dates: start: 20240525, end: 20240527

REACTIONS (5)
  - Overdose [Unknown]
  - Hypotension [Recovered/Resolved]
  - Areflexia [Recovered/Resolved]
  - Miosis [Recovered/Resolved]
  - Constipation [Unknown]

NARRATIVE: CASE EVENT DATE: 20240526
